FAERS Safety Report 18810496 (Version 1)
Quarter: 2021Q1

REPORT INFORMATION
  Report Type: Spontaneous
  Country: US (occurrence: US)
  Receive Date: 20210129
  Receipt Date: 20210129
  Transmission Date: 20210419
  Serious: No
  Sender: FDA-Public Use
  Company Number: US-PFIZER INC-2021046077

PATIENT
  Age: 67 Year
  Sex: Female

DRUGS (1)
  1. DAURISMO [Suspect]
     Active Substance: GLASDEGIB
     Indication: MYELOID LEUKAEMIA
     Dosage: 100 MG

REACTIONS (2)
  - Off label use [Unknown]
  - Neoplasm progression [Unknown]
